FAERS Safety Report 10619986 (Version 2)
Quarter: 2015Q1

REPORT INFORMATION
  Report Type: Spontaneous
  Country: US (occurrence: None)
  Receive Date: 20141126
  Receipt Date: 20150212
  Transmission Date: 20150720
  Serious: Yes (Other)
  Sender: FDA-Public Use
  Company Number: 201411092

PATIENT
  Age: 49 Year
  Sex: Male
  Weight: 90.72 kg

DRUGS (8)
  1. XIAFLEX [Suspect]
     Active Substance: COLLAGENASE CLOSTRIDIUM HISTOLYTICUM
     Indication: PEYRONIE^S DISEASE
     Dosage: INTRALESIONAL
     Dates: start: 201408, end: 20141007
  2. TESTOSTERONE. [Concomitant]
     Active Substance: TESTOSTERONE
  3. PRISTIQ (DESVENLAFAXINE SUCCINATE) [Concomitant]
     Active Substance: DESVENLAFAXINE SUCCINATE
  4. CIALIS [Concomitant]
     Active Substance: TADALAFIL
  5. LEXAPRO (ESCITALOPRAM OXILATE) [Concomitant]
  6. FLONASE [Concomitant]
     Active Substance: FLUTICASONE PROPIONATE
  7. COMPLERA (EMTRICITABINE, TENOFOVIR DISOPEOXIL FUMARATE, RILPIVIRINE HYDROCHLORIDE) [Concomitant]
  8. NORTRIPTYLINE [Concomitant]
     Active Substance: NORTRIPTYLINE

REACTIONS (1)
  - Fracture of penis [None]

NARRATIVE: CASE EVENT DATE: 20141026
